FAERS Safety Report 25006880 (Version 1)
Quarter: 2025Q1

REPORT INFORMATION
  Report Type: Report from Study
  Country: US (occurrence: US)
  Receive Date: 20250225
  Receipt Date: 20250225
  Transmission Date: 20250409
  Serious: Yes (Other)
  Sender: NOVARTIS
  Company Number: US-002147023-NVSC2024US193750

PATIENT
  Sex: Female

DRUGS (3)
  1. KISQALI [Suspect]
     Active Substance: RIBOCICLIB
     Indication: Product used for unknown indication
     Dosage: 600 MG, QD (200 MG/KG(MILIGRAM/KILOGRAM))
     Route: 048
     Dates: start: 20240119, end: 20240415
  2. KISQALI [Suspect]
     Active Substance: RIBOCICLIB
     Route: 048
     Dates: start: 20240415
  3. KISQALI [Suspect]
     Active Substance: RIBOCICLIB
     Dosage: 400 MG, QD
     Route: 048

REACTIONS (3)
  - Neutropenia [Unknown]
  - Cardiac ventricular thrombosis [Unknown]
  - Pulmonary thrombosis [Unknown]
